FAERS Safety Report 5463100-3 (Version None)
Quarter: 2007Q3

REPORT INFORMATION
  Report Type: 
  Country: None (occurrence: None)
  Receive Date: 20070918
  Receipt Date: 20070918
  Transmission Date: 20080115
  Serious: Yes (Life-Threatening)
  Sender: FDA-Public Use
  Company Number: None

PATIENT
  Sex: Male
  Weight: 75.4 kg

DRUGS (11)
  1. METOCLOPRAMIDE [Suspect]
     Indication: NAUSEA
     Dosage: 10MG EVERY 5 HOURS IV BOLUS
     Route: 040
     Dates: start: 20070113, end: 20070113
  2. OXYCODONE HCL [Concomitant]
  3. MORPHINE [Concomitant]
  4. ASPIRIN [Concomitant]
  5. ATORVASTATIN CALCIUM [Concomitant]
  6. ESOMEPRAZOLE MAGNESIUM [Concomitant]
  7. HYDROCHLOROTHIAZIDE [Concomitant]
  8. METOPROLOL [Concomitant]
  9. AMPICILLIN AND SULBACTAM [Concomitant]
  10. TORADOL [Concomitant]
  11. MAGNESIUM HYDROXIDE TAB [Concomitant]

REACTIONS (4)
  - APNOEA [None]
  - NAUSEA [None]
  - OXYGEN SATURATION DECREASED [None]
  - RESPIRATORY DISORDER [None]
